FAERS Safety Report 17700125 (Version 1)
Quarter: 2020Q2

REPORT INFORMATION
  Report Type: Spontaneous
  Country: US (occurrence: US)
  Receive Date: 20200423
  Receipt Date: 20200423
  Transmission Date: 20200714
  Serious: No
  Sender: FDA-Public Use
  Company Number: US-CELGENEUS-USA-20200406116

PATIENT
  Age: 85 Year
  Sex: Male
  Weight: 72.19 kg

DRUGS (2)
  1. REVLIMID [Suspect]
     Active Substance: LENALIDOMIDE
     Indication: OFF LABEL USE
     Dosage: 15 MILLIGRAM
     Route: 048
     Dates: start: 202004
  2. REVLIMID [Suspect]
     Active Substance: LENALIDOMIDE
     Indication: HYPERGAMMAGLOBULINAEMIA BENIGN MONOCLONAL
     Dosage: 25 MILLIGRAM
     Route: 048
     Dates: start: 202004

REACTIONS (1)
  - Hiccups [Recovered/Resolved]

NARRATIVE: CASE EVENT DATE: 202004
